FAERS Safety Report 5350775-2 (Version None)
Quarter: 2007Q2

REPORT INFORMATION
  Report Type: 
  Country: None (occurrence: None)
  Receive Date: 20070608
  Receipt Date: 20070529
  Transmission Date: 20071010
  Serious: Yes (Hospitalization)
  Sender: FDA-Public Use
  Company Number: AU-ROCHE-499609

PATIENT
  Age: 19 Year
  Sex: Female
  Weight: 50 kg

DRUGS (3)
  1. CAPECITABINE [Suspect]
     Dosage: AS PER PROTOCOL GIVEN 1000 MG/M2 TWICE DAILY FORM THE EVENING OF DAY ONE UNTIL THE MORNING OF DAY F+
     Route: 048
     Dates: start: 20070402
  2. BEVACIZUMAB [Suspect]
     Dosage: DOSAGE FORM REPORTED AS INFUSION. GIVEN ON DAY ONE OF EACH THREE-WEEK-CYCLE.
     Route: 042
     Dates: start: 20070402
  3. OXALIPLATIN [Suspect]
     Dosage: DOSAGE FORM REPORTED AS INFUSION. GIVEN ON DAY ONE OF EACH THREE-WEEK-CYCLE.
     Route: 042
     Dates: start: 20070402

REACTIONS (1)
  - COLITIS [None]
